FAERS Safety Report 6748170-4 (Version None)
Quarter: 2010Q2

REPORT INFORMATION
  Report Type: 
  Country: None (occurrence: None)
  Receive Date: 20100531
  Receipt Date: 20100521
  Transmission Date: 20101027
  Serious: Yes (Life-Threatening, Other)
  Sender: FDA-Public Use
  Company Number: DE-BRISTOL-MYERS SQUIBB COMPANY-15124928

PATIENT
  Age: 38 Year
  Sex: Male
  Weight: 53 kg

DRUGS (4)
  1. CETUXIMAB [Suspect]
     Indication: HEAD AND NECK CANCER
     Dosage: STRENGTH:5MG/ML, RECENT INF ON 18MAY2010, NO OF INF:11
     Route: 042
     Dates: start: 20100301
  2. CISPLATIN [Suspect]
     Indication: HEAD AND NECK CANCER
     Dosage: RECENT INF ON 11MAY2010, NO OF INF:4
     Route: 042
     Dates: start: 20100301
  3. CILENGITIDE [Suspect]
     Indication: HEAD AND NECK CANCER
     Dosage: RECENT INF ON 18MAY2010, NO OF INF:23
     Route: 042
     Dates: start: 20100301
  4. FLUOROURACIL [Suspect]
     Indication: HEAD AND NECK CANCER
     Dosage: RECENT INF ON 11MAY2010, NO OF INF:4 CONTINUOUS INF FROM DAY 1 TO DAY4 OF CYCLE
     Route: 042
     Dates: start: 20100301

REACTIONS (1)
  - PULMONARY EMBOLISM [None]
